FAERS Safety Report 10538983 (Version 1)
Quarter: 2014Q4

REPORT INFORMATION
  Report Type: Spontaneous
  Country: CA (occurrence: CA)
  Receive Date: 20141023
  Receipt Date: 20141023
  Transmission Date: 20150529
  Serious: Yes (Hospitalization, Other)
  Sender: FDA-Public Use
  Company Number: CA-GLAXOSMITHKLINE-CA2014GSK008720

PATIENT
  Sex: Male
  Weight: 62.13 kg

DRUGS (5)
  1. ADVAIR DISKUS [Suspect]
     Active Substance: FLUTICASONE PROPIONATE\SALMETEROL XINAFOATE
     Indication: EMPHYSEMA
     Dosage: 500/50 MCG 1 PUFF(S), BID
  2. SPIRIVA [Concomitant]
     Active Substance: TIOTROPIUM BROMIDE MONOHYDRATE
     Dosage: UNK
  3. ADVAIR DISKUS [Suspect]
     Active Substance: FLUTICASONE PROPIONATE\SALMETEROL XINAFOATE
     Indication: CHRONIC OBSTRUCTIVE PULMONARY DISEASE
     Dosage: 250/50 MCG 1 PUFF(S), BID
     Route: 055
  4. VENTOLIN [Concomitant]
     Active Substance: ALBUTEROL SULFATE
     Dosage: UNK
  5. ASA [Concomitant]
     Active Substance: ASPIRIN
     Dosage: 80 MG, QD

REACTIONS (8)
  - Dyspnoea [Unknown]
  - Rib fracture [Unknown]
  - Pulmonary function test decreased [Not Recovered/Not Resolved]
  - Lung infection [Recovered/Resolved]
  - Traumatic lung injury [Unknown]
  - Coronary arterial stent insertion [Unknown]
  - Prostate cancer [Recovered/Resolved]
  - Contusion [Unknown]
